FAERS Safety Report 13977521 (Version 2)
Quarter: 2017Q4

REPORT INFORMATION
  Report Type: Report from Study
  Country: AU (occurrence: AU)
  Receive Date: 20170915
  Receipt Date: 20171005
  Transmission Date: 20180321
  Serious: Yes (Hospitalization, Other)
  Sender: FDA-Public Use
  Company Number: AU-VERTEX PHARMACEUTICALS-2017-005017

PATIENT
  Age: 17 Year
  Sex: Female
  Weight: 43 kg

DRUGS (43)
  1. BRUFEN                             /00109201/ [Concomitant]
     Active Substance: IBUPROFEN
     Indication: ARTHRITIS
     Dosage: 2 DOSAGE FORM, BID
     Route: 048
  2. PANTOPRAZOLE [Concomitant]
     Active Substance: PANTOPRAZOLE
     Indication: GASTROOESOPHAGEAL REFLUX DISEASE
  3. ZITHROMAX [Concomitant]
     Active Substance: AZITHROMYCIN DIHYDRATE
     Dosage: 1 DOSAGE FORM, M, W, F
  4. RESPAX                             /00139501/ [Concomitant]
     Dosage: 4 DOSAGE FORM, BID
  5. RESPRIM [Concomitant]
     Active Substance: SULFAMETHOXAZOLE\TRIMETHOPRIM
     Dosage: 1 DOSAGE FORM, BID
  6. FEBRIDOL [Concomitant]
     Indication: PYREXIA
  7. TOBI [Concomitant]
     Active Substance: TOBRAMYCIN
     Dosage: 4 DOSAGE FORM, BID
     Route: 055
  8. SYMBICORT [Concomitant]
     Active Substance: BUDESONIDE\FORMOTEROL FUMARATE DIHYDRATE
     Indication: ASTHMA
     Dosage: 2 DOSAGE FORM, BID
  9. VENTOLIN [Concomitant]
     Active Substance: ALBUTEROL SULFATE
     Dosage: 4 DOSAGE FORM, BID
  10. EPAQ                               /00012501/ [Concomitant]
     Dosage: 4 DOSAGE FORM, BID
  11. HYPERSAL [Concomitant]
     Dosage: 2 MILLILITER WITH 6ML WATER
  12. PANADOL [Concomitant]
     Active Substance: ACETAMINOPHEN
     Indication: PAIN
     Dosage: 2 DOSAGE FORM, QID
     Route: 048
  13. DYMADON CO [Concomitant]
     Indication: PAIN
  14. LEVEMIR [Concomitant]
     Active Substance: INSULIN DETEMIR
     Indication: DIABETES MELLITUS
     Dosage: INFECT 2 UNITS WITHOUT FEEDS AND 16 UNIT AT NIGHT WITH FEEDS
  15. CREON [Concomitant]
     Active Substance: PANCRELIPASE AMYLASE\PANCRELIPASE LIPASE\PANCRELIPASE PROTEASE
     Dosage: VARIABLE
     Route: 048
  16. PANADOL [Concomitant]
     Active Substance: ACETAMINOPHEN
     Indication: PYREXIA
  17. LEVLEN [Concomitant]
     Active Substance: ETHINYL ESTRADIOL\LEVONORGESTREL
     Indication: CONTRACEPTION
     Dosage: 1 DOSAGE FORM, QD
  18. PULMOZYME [Concomitant]
     Active Substance: DORNASE ALFA
     Indication: CYSTIC FIBROSIS
     Dosage: 1 DOSAGE FORM, QD
     Route: 055
  19. BRUFEN                             /00109201/ [Concomitant]
     Active Substance: IBUPROFEN
     Indication: PAIN
  20. PARALGIN                           /00020001/ [Concomitant]
     Indication: PAIN
     Dosage: 2 DOSAGE FORM, QID
     Route: 048
  21. DYMADON CO [Concomitant]
     Indication: PYREXIA
     Dosage: 2 DOSAGE FORM, QID
     Route: 048
  22. SOMAC [Concomitant]
     Active Substance: PANTOPRAZOLE SODIUM
     Indication: ULCER
     Dosage: 1 DOSAGE FORM, BID
  23. URSOFALK [Concomitant]
     Active Substance: URSODIOL
     Dosage: 1 DOSAGE FORM, BID
     Route: 048
  24. MICROGYNON                         /00022701/ [Concomitant]
     Active Substance: ETHINYL ESTRADIOL\LEVONORGESTREL ACETATE
     Indication: CONTRACEPTION
     Dosage: 1 DOSAGE FORM, QD
  25. PROZAC [Concomitant]
     Active Substance: FLUOXETINE HYDROCHLORIDE
     Indication: DEPRESSION
     Dosage: 1 DOSAGE FORM, BID
  26. LOVAN [Concomitant]
     Active Substance: FLUOXETINE HYDROCHLORIDE
     Indication: DEPRESSION
     Dosage: 1 DOSAGE FORM, QD
  27. BACTRIM [Concomitant]
     Active Substance: SULFAMETHOXAZOLE\TRIMETHOPRIM
     Dosage: 1 DOSAGE FORM, BID
  28. SEPTRIN [Concomitant]
     Active Substance: SULFAMETHOXAZOLE\TRIMETHOPRIM
     Dosage: 1 DOSAGE FORM, BID
  29. PANAMAX                            /00020001/ [Concomitant]
     Indication: PAIN
     Dosage: 2 DOSAGE FORM, QID
     Route: 048
  30. PARALGIN                           /00020001/ [Concomitant]
     Indication: PYREXIA
  31. FEBRIDOL [Concomitant]
     Indication: PAIN
     Dosage: 2 DOSAGE FORM, QID
     Route: 048
  32. CALOGEN                            /00371903/ [Concomitant]
     Dosage: 120 MILLILITER
  33. MOTILIUM [Concomitant]
     Active Substance: DOMPERIDONE
     Indication: NAUSEA
     Dosage: 1 DOSAGE FORM, QD AT NIGHT
     Route: 048
  34. CREON [Concomitant]
     Active Substance: PANCRELIPASE AMYLASE\PANCRELIPASE LIPASE\PANCRELIPASE PROTEASE
     Dosage: VARIABLE
     Route: 048
  35. ASMOL                              /00020001/ [Concomitant]
     Dosage: 4 DOSAGE FORM, BID
  36. ZACTIN                             /00550802/ [Concomitant]
     Indication: DEPRESSION
     Dosage: 1 DOSAGE FORM, BID
  37. ZYRTEC [Concomitant]
     Active Substance: CETIRIZINE HYDROCHLORIDE
     Indication: HYPERSENSITIVITY
     Dosage: 1 DOSAGE FORM
  38. PANAMAX                            /00020001/ [Concomitant]
     Indication: PYREXIA
  39. CALOGEN                            /00371903/ [Concomitant]
     Dosage: TAKE 1 L AT NIGHT VIA FEED 5 NIGHTS PER WEEK NOT ON WED AND SAT
  40. SYMBICORT [Concomitant]
     Active Substance: BUDESONIDE\FORMOTEROL FUMARATE DIHYDRATE
     Indication: CHRONIC OBSTRUCTIVE PULMONARY DISEASE
  41. ORKAMBI [Suspect]
     Active Substance: IVACAFTOR\LUMACAFTOR
     Indication: CYSTIC FIBROSIS
     Dosage: 400-250 MG, BID
     Route: 048
     Dates: start: 20170404, end: 20170616
  42. PANTOPRAZOLE [Concomitant]
     Active Substance: PANTOPRAZOLE
     Indication: ULCER
     Dosage: 1 DOSAGE FORM, BID
  43. AIROMIR                            /00139501/ [Concomitant]
     Active Substance: ALBUTEROL
     Dosage: 4 DOSAGE FORM, BID

REACTIONS (3)
  - Dyspnoea [Recovered/Resolved]
  - Cystic fibrosis lung [Recovered/Resolved]
  - Respiration abnormal [Recovered/Resolved]

NARRATIVE: CASE EVENT DATE: 20170405
